FAERS Safety Report 12218946 (Version 8)
Quarter: 2020Q2

REPORT INFORMATION
  Report Type: Report from Study
  Country: JP (occurrence: JP)
  Receive Date: 20160329
  Receipt Date: 20200630
  Transmission Date: 20200713
  Serious: Yes (Death, Hospitalization, Other)
  Sender: FDA-Public Use
  Company Number: JP-INCYTE CORPORATION-2016IN001802

PATIENT

DRUGS (14)
  1. JAKAVI [Suspect]
     Active Substance: RUXOLITINIB
     Dosage: 10 MG, BID
     Route: 048
     Dates: start: 20141007, end: 20141010
  2. JAKAVI [Suspect]
     Active Substance: RUXOLITINIB
     Dosage: 25 MG DAILY IN TWO DIVIDED DOSES
     Route: 048
     Dates: start: 20170224, end: 20170323
  3. FUROSEMIDE. [Concomitant]
     Active Substance: FUROSEMIDE
     Indication: OEDEMA PERIPHERAL
  4. SPIRONOLACTONE. [Concomitant]
     Active Substance: SPIRONOLACTONE
     Indication: OEDEMA PERIPHERAL
  5. FUROSEMIDE. [Concomitant]
     Active Substance: FUROSEMIDE
     Indication: PENILE OEDEMA
  6. SPIRONOLACTONE. [Concomitant]
     Active Substance: SPIRONOLACTONE
     Indication: PENILE OEDEMA
  7. JAKAVI [Suspect]
     Active Substance: RUXOLITINIB
     Dosage: 5 MG, BID
     Route: 048
  8. FUROSEMIDE. [Concomitant]
     Active Substance: FUROSEMIDE
     Indication: SCROTAL OEDEMA
  9. SPIRONOLACTONE. [Concomitant]
     Active Substance: SPIRONOLACTONE
     Indication: ASCITES
     Dosage: 15 MG, QD
     Route: 065
  10. JAKAVI [Suspect]
     Active Substance: RUXOLITINIB
     Dosage: 10 MG, BID
     Route: 048
     Dates: start: 20150220
  11. FUROSEMIDE. [Concomitant]
     Active Substance: FUROSEMIDE
     Indication: ASCITES
     Dosage: UNK
     Route: 065
  12. JAKAVI [Suspect]
     Active Substance: RUXOLITINIB
     Indication: PRIMARY MYELOFIBROSIS
     Dosage: 5 MG, BID
     Route: 048
     Dates: start: 20140906, end: 20141006
  13. JAKAVI [Suspect]
     Active Substance: RUXOLITINIB
     Dosage: 5 MG, BID
     Route: 048
     Dates: start: 20141011, end: 20150219
  14. SPIRONOLACTONE. [Concomitant]
     Active Substance: SPIRONOLACTONE
     Indication: SCROTAL OEDEMA

REACTIONS (11)
  - Concomitant disease progression [Recovering/Resolving]
  - Ascites [Recovering/Resolving]
  - Pleural effusion [Recovering/Resolving]
  - Blood alkaline phosphatase increased [Recovered/Resolved]
  - Penile oedema [Recovering/Resolving]
  - Scrotal oedema [Recovering/Resolving]
  - Blood urea increased [Recovered/Resolved]
  - Dyspnoea [Unknown]
  - Primary myelofibrosis [Fatal]
  - Oedema peripheral [Recovering/Resolving]
  - Weight decreased [Recovering/Resolving]

NARRATIVE: CASE EVENT DATE: 20141010
